FAERS Safety Report 12495122 (Version 1)
Quarter: 2016Q2

REPORT INFORMATION
  Report Type: Spontaneous
  Country: US (occurrence: None)
  Receive Date: 20160623
  Receipt Date: 20160623
  Transmission Date: 20160815
  Serious: Yes (Other)
  Sender: FDA-Public Use
  Company Number: None

PATIENT
  Age: 45 Year
  Sex: Male
  Weight: 99.79 kg

DRUGS (3)
  1. REMERON [Concomitant]
     Active Substance: MIRTAZAPINE
  2. SERTRALINE HCL [Suspect]
     Active Substance: SERTRALINE HYDROCHLORIDE
     Indication: DEPRESSION
     Route: 048
     Dates: start: 20160516, end: 20160525
  3. BENICAR [Concomitant]
     Active Substance: OLMESARTAN MEDOXOMIL

REACTIONS (4)
  - Product substitution issue [None]
  - Disease recurrence [None]
  - Depression [None]
  - Drug ineffective [None]

NARRATIVE: CASE EVENT DATE: 20160516
